FAERS Safety Report 11919606 (Version 2)
Quarter: 2016Q4

REPORT INFORMATION
  Report Type: Spontaneous
  Country: FR (occurrence: FR)
  Receive Date: 20160115
  Receipt Date: 20161212
  Transmission Date: 20170206
  Serious: Yes (Hospitalization, Other)
  Sender: FDA-Public Use
  Company Number: FR-ABBVIE-16K-056-1536662-00

PATIENT
  Age: 46 Year
  Sex: Male

DRUGS (1)
  1. HUMIRA [Suspect]
     Active Substance: ADALIMUMAB
     Indication: SAPHO SYNDROME
     Route: 058
     Dates: start: 20151026

REACTIONS (11)
  - Ischaemic stroke [Unknown]
  - Cerebral thrombosis [Recovered/Resolved with Sequelae]
  - Paraesthesia [Recovered/Resolved]
  - Paraesthesia [Recovered/Resolved]
  - Language disorder [Unknown]
  - Paraesthesia [Recovered/Resolved]
  - Muscular weakness [Not Recovered/Not Resolved]
  - Carotid artery thrombosis [Unknown]
  - Paraesthesia [Unknown]
  - Hypoaesthesia [Unknown]
  - Tremor [Not Recovered/Not Resolved]

NARRATIVE: CASE EVENT DATE: 2015
